FAERS Safety Report 11526833 (Version 1)
Quarter: 2015Q3

REPORT INFORMATION
  Report Type: Spontaneous
  Country: US (occurrence: US)
  Receive Date: 20150903
  Receipt Date: 20150903
  Transmission Date: 20151125
  Serious: No
  Sender: FDA-Public Use
  Company Number: US-ELI_LILLY_AND_COMPANY-US201403010925

PATIENT
  Sex: Female

DRUGS (5)
  1. DULOXETINE HYDROCHLORIDE. [Suspect]
     Active Substance: DULOXETINE HYDROCHLORIDE
     Indication: DEPRESSION
     Dosage: 60 MG, QD
     Route: 065
     Dates: start: 201212
  2. GABAPENTIN. [Concomitant]
     Active Substance: GABAPENTIN
  3. DULOXETINE HYDROCHLORIDE. [Suspect]
     Active Substance: DULOXETINE HYDROCHLORIDE
     Indication: PAIN
     Dosage: 90 MG, QD
     Route: 065
     Dates: end: 201303
  4. HYDROMORPHONE [Concomitant]
     Active Substance: HYDROMORPHONE
  5. PROCHLORPERAZINE. [Concomitant]
     Active Substance: PROCHLORPERAZINE

REACTIONS (2)
  - Nightmare [Recovering/Resolving]
  - Abnormal dreams [Recovering/Resolving]
